FAERS Safety Report 9012323 (Version 5)
Quarter: 2013Q4

REPORT INFORMATION
  Report Type: Report from Study
  Country: PL (occurrence: PL)
  Receive Date: 20130114
  Receipt Date: 20131218
  Transmission Date: 20140711
  Serious: Yes (Death)
  Sender: FDA-Public Use
  Company Number: PL-PFIZER INC-2013010878

PATIENT
  Age: 68 Year
  Sex: Male

DRUGS (23)
  1. TEMSIROLIMUS [Suspect]
     Indication: MANTLE CELL LYMPHOMA
     Dosage: 75 MG, WEEKLY
     Route: 042
     Dates: start: 20110905, end: 20111128
  2. TEMSIROLIMUS [Suspect]
     Dosage: 50 MG, WEEKLY
     Route: 042
     Dates: start: 20111129, end: 20111205
  3. TEMSIROLIMUS [Suspect]
     Dosage: 25 UNK, WEEKLY
     Route: 042
     Dates: start: 20111206
  4. SORTIS [Concomitant]
     Indication: HYPERCHOLESTEROLAEMIA
     Dosage: 10 UNK, UNK
     Dates: start: 20121220, end: 20130108
  5. PREDUCTAL [Concomitant]
     Indication: MYOCARDIAL ISCHAEMIA
     Dosage: UNK
     Dates: start: 20121220, end: 20130108
  6. ACARD [Concomitant]
     Indication: MYOCARDIAL ISCHAEMIA
     Dosage: UNK
     Dates: start: 20121220, end: 20130108
  7. CONCOR COR [Concomitant]
     Indication: HYPERTENSION
     Dosage: UNK
     Dates: end: 20130108
  8. GLUCOSE [Concomitant]
     Indication: SUPPLEMENTATION THERAPY
     Dosage: 20 %, UNK
     Dates: start: 20121214, end: 20121220
  9. PARACETAMOL [Concomitant]
     Indication: PNEUMONIA
     Dosage: UNK
     Dates: start: 20121214, end: 20121220
  10. BIODACYNA [Concomitant]
     Indication: PNEUMONIA
     Dosage: UNK
     Dates: start: 20121214, end: 20121220
  11. SODIUM CHLORIDE [Concomitant]
     Indication: SUPPLEMENTATION THERAPY
     Dosage: UNK
     Dates: start: 20121214, end: 20121220
  12. FLUCONAZOLE [Concomitant]
     Indication: PNEUMONIA
     Dosage: UNK
     Dates: start: 20121214, end: 20121220
  13. DIFLUCAN [Concomitant]
     Indication: PNEUMONIA
     Dosage: UNK
     Dates: start: 20121227, end: 20130108
  14. PANTOPRAZOL [Concomitant]
     Indication: PROPHYLAXIS AGAINST GASTROINTESTINAL ULCER
     Dosage: UNK
     Dates: start: 20121214, end: 20121220
  15. ACICLOVIR [Concomitant]
     Indication: PNEUMONIA
     Dosage: UNK
     Dates: start: 20121214, end: 20121220
  16. SOLUTIO RINGERI ^CIV^ [Concomitant]
     Indication: SUPPLEMENTATION THERAPY
     Dosage: UNK
     Dates: start: 20121214, end: 20121220
  17. CEFTAZIDIME [Concomitant]
     Indication: PNEUMONIA
     Dosage: UNK
     Dates: start: 20121214, end: 20121220
  18. TRITACE [Concomitant]
     Indication: HYPERTENSION
     Dosage: 10 UNK, UNK
     Dates: start: 2000, end: 20130108
  19. TERTENSIF - SLOW RELEASE [Concomitant]
     Indication: MYOCARDIAL ISCHAEMIA
     Dosage: UNK
     Dates: start: 2000, end: 20130108
  20. AFOBAM [Concomitant]
     Indication: ANXIETY
     Dosage: UNK
     Dates: start: 20130102, end: 20130108
  21. ZYRTEC [Concomitant]
     Indication: ECZEMA
     Dosage: UNK
     Dates: start: 20110913, end: 20130108
  22. TELFAST [Concomitant]
     Indication: ECZEMA
     Dosage: 180 UNK, UNK
     Dates: start: 20110927, end: 20130108
  23. CEDEX [Concomitant]
     Indication: PNEUMONIA
     Dosage: UNK
     Dates: start: 20121227, end: 20130108

REACTIONS (1)
  - Death [Fatal]
